FAERS Safety Report 5283976-2 (Version None)
Quarter: 2007Q2

REPORT INFORMATION
  Report Type: 
  Country: None (occurrence: None)
  Receive Date: 20070402
  Receipt Date: 20070322
  Transmission Date: 20071010
  Serious: Yes (Hospitalization, Other)
  Sender: FDA-Public Use
  Company Number: JP-PFIZER INC-2007014492

PATIENT
  Age: 24 Year
  Sex: Female

DRUGS (3)
  1. DISOPYRAMIDE PHOSPHATE CAPSULE [Suspect]
     Route: 048
  2. DILTIAZEM [Suspect]
     Route: 048
  3. KALLIDINOGENASE [Suspect]
     Route: 048

REACTIONS (7)
  - DEPRESSED LEVEL OF CONSCIOUSNESS [None]
  - ELECTROCARDIOGRAM QT PROLONGED [None]
  - HYPOKALAEMIA [None]
  - HYPOTENSION [None]
  - NODAL RHYTHM [None]
  - OVERDOSE [None]
  - SUICIDE ATTEMPT [None]
